FAERS Safety Report 8249412-9 (Version None)
Quarter: 2012Q2

REPORT INFORMATION
  Report Type: 
  Country: None (occurrence: None)
  Receive Date: 20120402
  Receipt Date: 20120323
  Transmission Date: 20120825
  Serious: Yes (Hospitalization)
  Sender: FDA-Public Use
  Company Number: US-BAYER-2011-109331

PATIENT
  Age: 41 Year
  Sex: Female

DRUGS (6)
  1. YASMIN [Suspect]
     Dosage: UNK
     Dates: start: 20050930, end: 20091226
  2. MINOCYCLINE HCL [Concomitant]
     Indication: ACNE
  3. MULTI-VITAMINS [Concomitant]
  4. ALBUTEROL [Concomitant]
     Dosage: UNK UNK, PRN
  5. ALLEGRA D 24 HOUR [Concomitant]
  6. FLONASE [Concomitant]

REACTIONS (3)
  - PULMONARY EMBOLISM [None]
  - DEEP VEIN THROMBOSIS [None]
  - INJURY [None]
